FAERS Safety Report 10157403 (Version 1)
Quarter: 2014Q2

REPORT INFORMATION
  Report Type: Report from Study
  Country: CA (occurrence: CA)
  Receive Date: 20140507
  Receipt Date: 20140507
  Transmission Date: 20141212
  Serious: Yes (Other)
  Sender: FDA-Public Use
  Company Number: CA-JNJFOC-20140500336

PATIENT
  Sex: Female
  Weight: 68 kg

DRUGS (2)
  1. REMICADE [Suspect]
     Indication: RHEUMATOID ARTHRITIS
     Route: 042
     Dates: start: 20061109
  2. METHOTREXATE [Concomitant]
     Route: 048

REACTIONS (1)
  - Foot deformity [Recovering/Resolving]
